FAERS Safety Report 5995434-8 (Version None)
Quarter: 2008Q4

REPORT INFORMATION
  Report Type: 
  Country: None (occurrence: None)
  Receive Date: 20081212
  Receipt Date: 20080930
  Transmission Date: 20090506
  Serious: No
  Sender: FDA-Public Use
  Company Number: US-ABBOTT-08P-163-0479005-00

PATIENT
  Sex: Male
  Weight: 124.85 kg

DRUGS (8)
  1. HUMIRA [Suspect]
     Indication: PSORIATIC ARTHROPATHY
     Dates: start: 20080101, end: 20080801
  2. HUMIRA [Suspect]
     Route: 058
     Dates: start: 20080901
  3. VICODIN [Concomitant]
     Indication: PAIN
     Route: 048
  4. CYCLOBENZAPRINE HCL [Concomitant]
     Indication: PAIN
     Route: 048
  5. VENLAFAXINE HCL [Concomitant]
     Indication: DEPRESSION
     Route: 048
  6. ATORVASTATIN CALCIUM [Concomitant]
     Indication: DRUG USE FOR UNKNOWN INDICATION
     Route: 048
  7. LAMOTRIGINE [Concomitant]
     Indication: DEPRESSION
     Route: 048
  8. CETIRIZINE HYDROCHLORIDE [Concomitant]
     Indication: SEASONAL ALLERGY
     Route: 048

REACTIONS (5)
  - INTERVERTEBRAL DISC PROTRUSION [None]
  - PIGMENTATION DISORDER [None]
  - PRURITUS [None]
  - RASH [None]
  - SCIATICA [None]
